FAERS Safety Report 5814895-8 (Version None)
Quarter: 2008Q3

REPORT INFORMATION
  Report Type: 
  Country: None (occurrence: None)
  Receive Date: 20080718
  Receipt Date: 20080710
  Transmission Date: 20090109
  Serious: Yes (Other)
  Sender: FDA-Public Use
  Company Number: GB-JNJFOC-20080702985

PATIENT
  Age: 40 Year
  Sex: Female

DRUGS (2)
  1. NORETHINDRONE ACETATE [Suspect]
     Indication: REPRODUCTIVE TRACT DISORDER
     Route: 048
  2. MICROGYNON [Suspect]
     Indication: DRUG USE FOR UNKNOWN INDICATION

REACTIONS (1)
  - ALANINE AMINOTRANSFERASE INCREASED [None]
